FAERS Safety Report 21692532 (Version 1)
Quarter: 2022Q4

REPORT INFORMATION
  Report Type: Spontaneous
  Country: GR (occurrence: GR)
  Receive Date: 20221207
  Receipt Date: 20221207
  Transmission Date: 20230112
  Serious: Yes (Other)
  Sender: FDA-Public Use
  Company Number: GR-JNJFOC-20221203348

PATIENT
  Age: 38 Year
  Sex: Male

DRUGS (1)
  1. REMICADE [Suspect]
     Active Substance: INFLIXIMAB
     Indication: Colitis ulcerative
     Route: 041
     Dates: end: 202001

REACTIONS (5)
  - Adenocarcinoma [Unknown]
  - Anorectal disorder [Unknown]
  - Dysplasia [Unknown]
  - Eczema [Unknown]
  - Off label use [Unknown]
